FAERS Safety Report 11085158 (Version 2)
Quarter: 2015Q2

REPORT INFORMATION
  Report Type: Spontaneous
  Country: US (occurrence: US)
  Receive Date: 20150503
  Receipt Date: 20150525
  Transmission Date: 20150821
  Serious: No
  Sender: FDA-Public Use
  Company Number: US-JNJFOC-20150321683

PATIENT
  Age: 73 Year
  Sex: Female
  Weight: 65 kg

DRUGS (11)
  1. ^MILKTHISTLE^ [Concomitant]
     Indication: DETOXIFICATION
     Route: 048
     Dates: start: 2012
  2. MAGNESIUM [Concomitant]
     Active Substance: MAGNESIUM
     Indication: BONE DISORDER
     Route: 048
     Dates: start: 2005
  3. XARELTO [Suspect]
     Active Substance: RIVAROXABAN
     Indication: ATRIAL FIBRILLATION
     Route: 048
     Dates: start: 20150220
  4. XARELTO [Suspect]
     Active Substance: RIVAROXABAN
     Indication: CEREBROVASCULAR ACCIDENT PROPHYLAXIS
     Route: 048
     Dates: start: 20150220
  5. LOSARTAN [Concomitant]
     Active Substance: LOSARTAN
     Indication: HYPERTENSION
     Route: 048
     Dates: start: 2013
  6. METOPROLOL [Concomitant]
     Active Substance: METOPROLOL
     Indication: HYPERGLYCAEMIA
     Route: 048
     Dates: start: 2010
  7. HCTZ [Concomitant]
     Active Substance: HYDROCHLOROTHIAZIDE
     Indication: HYPERTENSION
     Route: 048
     Dates: start: 201502
  8. BENFOTIAMINE [Concomitant]
     Active Substance: BENFOTIAMINE
     Indication: HYPERGLYCAEMIA
     Route: 048
     Dates: start: 2013
  9. METFORMIN [Concomitant]
     Active Substance: METFORMIN HYDROCHLORIDE
     Indication: HYPERGLYCAEMIA
     Route: 048
     Dates: start: 2010
  10. VITAMIN D3 [Concomitant]
     Active Substance: CHOLECALCIFEROL
     Indication: BONE DISORDER
     Route: 048
     Dates: start: 2012
  11. CARNOSINE [Concomitant]
     Active Substance: CARNOSINE
     Route: 048
     Dates: start: 2011

REACTIONS (1)
  - Inappropriate schedule of drug administration [Unknown]

NARRATIVE: CASE EVENT DATE: 20150220
